FAERS Safety Report 6530703-4 (Version None)
Quarter: 2010Q1

REPORT INFORMATION
  Report Type: 
  Country: None (occurrence: None)
  Receive Date: 20100108
  Receipt Date: 20081219
  Transmission Date: 20100710
  Serious: No
  Sender: FDA-Public Use
  Company Number: A0759006A

PATIENT
  Age: 49 Year
  Sex: Female
  Weight: 75.5 kg

DRUGS (2)
  1. LOVAZA [Suspect]
     Indication: DRUG USE FOR UNKNOWN INDICATION
     Dosage: 4CAP PER DAY
     Route: 065
     Dates: start: 20080728, end: 20080729
  2. UNKNOWN [Concomitant]

REACTIONS (1)
  - BACK PAIN [None]
